FAERS Safety Report 8897716 (Version 1)
Quarter: 2012Q4

REPORT INFORMATION
  Report Type: 
  Country: US (occurrence: US)
  Receive Date: 20121108
  Receipt Date: 20121108
  Transmission Date: 20130627
  Serious: Yes (Hospitalization)
  Sender: FDA-Public Use
  Company Number: US-AMGEN-USASP2012024191

PATIENT
  Age: 63 Year
  Sex: Female
  Weight: 88.44 kg

DRUGS (10)
  1. ENBREL [Suspect]
     Indication: PRODUCT USED FOR UNKNOWN INDICATION
     Dosage: 50 mg, qwk
     Route: 058
  2. NAPROXEN SODIUM [Concomitant]
     Dosage: 220 mg, UNK
  3. FOLIC ACID [Concomitant]
     Dosage: 1 mg, UNK
  4. OMEPRAZOLE [Concomitant]
     Dosage: 10 mg, UNK
  5. FUROSEMIDE [Concomitant]
     Dosage: 20 mg, UNK
  6. VITAMIN D [Concomitant]
     Dosage: 400 IU, UNK
  7. WARFARIN [Concomitant]
     Dosage: 1 mg, UNK
  8. CALCIUM D [Concomitant]
     Dosage: UNK
  9. FLONASE [Concomitant]
     Dosage: UNK
  10. PREDNISONE [Concomitant]
     Dosage: UNK

REACTIONS (1)
  - Cellulitis staphylococcal [Recovered/Resolved]
